FAERS Safety Report 24653929 (Version 3)
Quarter: 2025Q2

REPORT INFORMATION
  Report Type: Spontaneous
  Country: FR (occurrence: FR)
  Receive Date: 20241122
  Receipt Date: 20250411
  Transmission Date: 20250716
  Serious: No
  Sender: TOLMAR
  Company Number: FR-RECORDATI-2024008482

PATIENT
  Age: 71 Year
  Sex: Male

DRUGS (1)
  1. ELIGARD [Suspect]
     Active Substance: LEUPROLIDE ACETATE
     Indication: Prostate cancer

REACTIONS (3)
  - Intercepted product preparation error [Unknown]
  - Product reconstitution quality issue [Unknown]
  - Device defective [Unknown]
